FAERS Safety Report 12359973 (Version 2)
Quarter: 2016Q2

REPORT INFORMATION
  Report Type: Spontaneous
  Country: AU (occurrence: AU)
  Receive Date: 20160512
  Receipt Date: 20160517
  Transmission Date: 20160815
  Serious: Yes (Other)
  Sender: FDA-Public Use
  Company Number: AU-JNJFOC-20160504540

PATIENT

DRUGS (3)
  1. METHOTREXATE [Suspect]
     Active Substance: METHOTREXATE
     Indication: PRODUCT USED FOR UNKNOWN INDICATION
     Route: 065
  2. INFLIXIMAB, RECOMBINANT [Suspect]
     Active Substance: INFLIXIMAB
     Indication: PSORIASIS
     Route: 042
  3. USTEKINUMAB [Suspect]
     Active Substance: USTEKINUMAB
     Indication: PSORIASIS
     Route: 058

REACTIONS (9)
  - Blood glucose fluctuation [Unknown]
  - Weight increased [Unknown]
  - Double stranded DNA antibody positive [Unknown]
  - Squamous cell carcinoma [Unknown]
  - Weight decreased [Unknown]
  - Hepatic steatosis [Unknown]
  - Antinuclear antibody positive [Unknown]
  - Liver function test abnormal [Unknown]
  - Infusion related reaction [Unknown]
